FAERS Safety Report 7047648-6 (Version None)
Quarter: 2010Q4

REPORT INFORMATION
  Report Type: 
  Country: None (occurrence: None)
  Receive Date: 20101014
  Receipt Date: 20101014
  Transmission Date: 20110411
  Serious: Yes (Hospitalization)
  Sender: FDA-Public Use
  Company Number: None

PATIENT
  Sex: Male
  Weight: 7137 kg

DRUGS (3)
  1. CARBOPLATIN [Suspect]
     Dosage: 549 MG
     Dates: end: 20100930
  2. ERBITUX [Suspect]
     Dosage: 740 MG
     Dates: end: 20100930
  3. TAXOL [Suspect]
     Dosage: 370 MG
     Dates: end: 20100930

REACTIONS (3)
  - ASTHENIA [None]
  - DYSPNOEA [None]
  - FALL [None]
